FAERS Safety Report 12974737 (Version 1)
Quarter: 2016Q4

REPORT INFORMATION
  Report Type: Spontaneous
  Country: CA (occurrence: CA)
  Receive Date: 20161125
  Receipt Date: 20161125
  Transmission Date: 20170207
  Serious: Yes (Other)
  Sender: FDA-Public Use
  Company Number: CA-AMGEN-CANSP2016162521

PATIENT
  Age: 60 Year
  Sex: Female
  Weight: 50 kg

DRUGS (6)
  1. PROLIA [Suspect]
     Active Substance: DENOSUMAB
     Indication: OSTEOPOROSIS POSTMENOPAUSAL
     Route: 058
  2. VITAMIN D [Concomitant]
     Active Substance: CHOLECALCIFEROL
  3. HYDROMORPHONE [Suspect]
     Active Substance: HYDROMORPHONE
     Indication: SPINAL FRACTURE
     Dosage: 1 MG, BID
     Route: 065
  4. CALCIUM [Suspect]
     Active Substance: CALCIUM
     Indication: GASTRIC DISORDER
     Dosage: 500 UNK, BID
     Route: 048
  5. HYDROMORPHONE [Suspect]
     Active Substance: HYDROMORPHONE
     Indication: PAIN
  6. KEPPRA [Suspect]
     Active Substance: LEVETIRACETAM
     Indication: EPILEPSY
     Route: 065

REACTIONS (4)
  - Gastric disorder [Unknown]
  - Back pain [Unknown]
  - Spinal fracture [Unknown]
  - Fatigue [Unknown]
